FAERS Safety Report 6182901-X (Version None)
Quarter: 2009Q2

REPORT INFORMATION
  Report Type: 
  Country: None (occurrence: None)
  Receive Date: 20090507
  Receipt Date: 20090428
  Transmission Date: 20091009
  Serious: Yes (Hospitalization)
  Sender: FDA-Public Use
  Company Number: GB-MERCK-0904GBR00111

PATIENT
  Sex: Male

DRUGS (5)
  1. ISENTRESS [Suspect]
     Indication: HIV INFECTION
     Route: 048
     Dates: start: 20080101, end: 20080101
  2. ISENTRESS [Suspect]
     Route: 048
     Dates: start: 20080101, end: 20080101
  3. RITONAVIR [Suspect]
     Indication: HIV INFECTION
     Route: 048
     Dates: start: 20080101
  4. DARUNAVIR [Suspect]
     Indication: HIV INFECTION
     Route: 048
     Dates: start: 20080101
  5. INSULIN ASPART [Concomitant]
     Route: 065

REACTIONS (4)
  - CHEST PAIN [None]
  - HEART RATE INCREASED [None]
  - INFECTION [None]
  - PALPITATIONS [None]
